FAERS Safety Report 12665457 (Version 2)
Quarter: 2016Q3

REPORT INFORMATION
  Report Type: Spontaneous
  Country: GB (occurrence: GB)
  Receive Date: 20160818
  Receipt Date: 20160914
  Transmission Date: 20161109
  Serious: Yes (Other)
  Sender: FDA-Public Use
  Company Number: GB-PFIZER INC-2016388962

PATIENT
  Age: 57 Year
  Sex: Male

DRUGS (2)
  1. PHENYTOIN. [Suspect]
     Active Substance: PHENYTOIN
     Dosage: 250 MG, UNK
     Route: 042
  2. LIDOCAINE. [Interacting]
     Active Substance: LIDOCAINE
     Dosage: 1 MG/KG, UNK
     Route: 041

REACTIONS (2)
  - Drug interaction [Unknown]
  - Sinus arrest [Recovered/Resolved]
